FAERS Safety Report 9332135 (Version 1)
Quarter: 2013Q2

REPORT INFORMATION
  Report Type: Spontaneous
  Country: US (occurrence: US)
  Receive Date: 20130606
  Receipt Date: 20130606
  Transmission Date: 20140414
  Serious: Yes (Hospitalization, Disabling)
  Sender: FDA-Public Use
  Company Number: US-ROCHE-1231810

PATIENT
  Sex: Male

DRUGS (2)
  1. ZELBORAF [Suspect]
     Indication: METASTATIC MALIGNANT MELANOMA
     Route: 048
  2. COBIMETINIB [Suspect]
     Indication: METASTATIC MALIGNANT MELANOMA
     Route: 048

REACTIONS (3)
  - Uveitis [Unknown]
  - Pyrexia [Unknown]
  - Conjunctivitis [Recovered/Resolved]
